FAERS Safety Report 24997247 (Version 3)
Quarter: 2025Q1

REPORT INFORMATION
  Report Type: Report from Study
  Country: JP (occurrence: JP)
  Receive Date: 20250221
  Receipt Date: 20250314
  Transmission Date: 20250409
  Serious: Yes (Death, Other)
  Sender: ABBVIE
  Company Number: JP-ABBVIE-5660533

PATIENT
  Age: 76 Year
  Sex: Male
  Weight: 48 kg

DRUGS (4)
  1. VYALEV [Suspect]
     Active Substance: FOSCARBIDOPA\FOSLEVODOPA
     Indication: Parkinson^s disease
     Route: 058
     Dates: start: 20240116, end: 20240227
  2. ROPINIROLE HYDROCHLORIDE [Concomitant]
     Active Substance: ROPINIROLE HYDROCHLORIDE
     Indication: Product used for unknown indication
     Dosage: FORM STRENGTH: 24 MILLIGRAM
     Route: 062
     Dates: start: 20200128
  3. ZONISAMIDE [Concomitant]
     Active Substance: ZONISAMIDE
     Indication: Product used for unknown indication
     Dosage: FORM STRENGTH: 50 MILLIGRAM
     Route: 048
     Dates: start: 20170704
  4. SAFINAMIDE MESYLATE [Concomitant]
     Active Substance: SAFINAMIDE MESYLATE
     Indication: Product used for unknown indication
     Dosage: FORM STRENGTH: 50
     Route: 048
     Dates: start: 20210203

REACTIONS (9)
  - Sudden death [Fatal]
  - Fall [Recovered/Resolved]
  - Gait disturbance [Unknown]
  - Cardio-respiratory arrest [Unknown]
  - Akinesia [Unknown]
  - Respiratory arrest [Unknown]
  - Fall [Unknown]
  - Myocardial infarction [Unknown]
  - Hypothermia [Unknown]

NARRATIVE: CASE EVENT DATE: 20240227
